FAERS Safety Report 8471740 (Version 3)
Quarter: 2012Q4

REPORT INFORMATION
  Report Type: Report from Study
  Country: DE (occurrence: DE)
  Receive Date: 20120322
  Receipt Date: 20121224
  Transmission Date: 20130627
  Serious: Yes (Hospitalization)
  Sender: FDA-Public Use
  Company Number: DE-ROCHE-1047447

PATIENT
  Age: 65 Year
  Sex: Male
  Weight: 84.6 kg

DRUGS (2)
  1. VEMURAFENIB [Suspect]
     Indication: MALIGNANT MELANOMA
     Dosage: form: drugs
     Route: 048
     Dates: start: 20120201, end: 20120305
  2. VEMURAFENIB [Suspect]
     Route: 048
     Dates: start: 20120317

REACTIONS (1)
  - Dermatitis exfoliative [Recovered/Resolved]
